FAERS Safety Report 12674810 (Version 1)
Quarter: 2016Q3

REPORT INFORMATION
  Report Type: Spontaneous
  Country: VN (occurrence: VN)
  Receive Date: 20160823
  Receipt Date: 20160823
  Transmission Date: 20161109
  Serious: Yes (Other)
  Sender: FDA-Public Use
  Company Number: VN-ROCHE-1813881

PATIENT
  Age: 74 Year
  Sex: Male

DRUGS (5)
  1. FLUOROURACIL. [Suspect]
     Active Substance: FLUOROURACIL
     Indication: COLON CANCER STAGE IV
     Route: 065
     Dates: start: 201511
  2. IRINOTECAN [Suspect]
     Active Substance: IRINOTECAN
     Indication: COLON CANCER STAGE IV
     Route: 065
     Dates: start: 201511
  3. XELODA [Concomitant]
     Active Substance: CAPECITABINE
     Dosage: FROM DAY 1 TO DAY 14 (21 DAY CYCLE)
     Route: 065
  4. AVASTIN [Suspect]
     Active Substance: BEVACIZUMAB
     Indication: COLON CANCER STAGE IV
     Route: 065
     Dates: start: 201511
  5. FOLINIC ACID [Suspect]
     Active Substance: LEUCOVORIN
     Indication: COLON CANCER STAGE IV
     Route: 065
     Dates: start: 201511

REACTIONS (5)
  - Gastric haemorrhage [Recovered/Resolved]
  - Impaired healing [Recovered/Resolved]
  - Diverticulum intestinal [Not Recovered/Not Resolved]
  - Sinusitis [Not Recovered/Not Resolved]
  - Epistaxis [Recovered/Resolved]
